FAERS Safety Report 12448692 (Version 1)
Quarter: 2016Q2

REPORT INFORMATION
  Report Type: Spontaneous
  Country: US (occurrence: US)
  Receive Date: 20160608
  Receipt Date: 20160608
  Transmission Date: 20160815
  Serious: No
  Sender: FDA-Public Use
  Company Number: US-DSJP-DSU-2016-113550

PATIENT
  Sex: Male

DRUGS (3)
  1. BENICAR [Suspect]
     Active Substance: OLMESARTAN MEDOXOMIL
     Indication: HYPERTENSION
     Dosage: 40 MG (1/2 TABLET) , BID
     Route: 048
     Dates: start: 2013, end: 201412
  2. LYRICA [Concomitant]
     Active Substance: PREGABALIN
     Indication: NEUROPATHY PERIPHERAL
     Dosage: 100 MG, TID
     Route: 048
  3. CYMBALTA [Concomitant]
     Active Substance: DULOXETINE HYDROCHLORIDE
     Indication: NEUROPATHY PERIPHERAL
     Dosage: 20 MG, QD
     Route: 048
     Dates: start: 201602

REACTIONS (6)
  - Weight increased [Not Recovered/Not Resolved]
  - Drug administration error [Recovered/Resolved]
  - Hypertension [Not Recovered/Not Resolved]
  - Blood pressure decreased [Recovered/Resolved]
  - Balance disorder [Recovered/Resolved]
  - Weight decreased [Recovered/Resolved]

NARRATIVE: CASE EVENT DATE: 2013
